FAERS Safety Report 23217345 (Version 1)
Quarter: 2023Q4

REPORT INFORMATION
  Report Type: Spontaneous
  Country: US (occurrence: None)
  Receive Date: 20231121
  Receipt Date: 20231121
  Transmission Date: 20240110
  Serious: Yes (unspecified)
  Sender: FDA-Public Use
  Company Number: None

PATIENT
  Age: 9 Year
  Sex: Female
  Weight: 29.25 kg

DRUGS (2)
  1. MONTELUKAST SODIUM CHEWABLE [Suspect]
     Active Substance: MONTELUKAST SODIUM
     Indication: Asthma
     Dosage: OTHER QUANTITY : 1 TABLET(S);?FREQUENCY : AT BEDTIME;?
     Route: 048
     Dates: start: 20231001, end: 20231113
  2. VITAMIN C [Concomitant]
     Active Substance: ASCORBIC ACID

REACTIONS (7)
  - Insomnia [None]
  - Obsessive-compulsive disorder [None]
  - Insomnia [None]
  - Hallucination [None]
  - Sleep terror [None]
  - Restlessness [None]
  - Skin burning sensation [None]

NARRATIVE: CASE EVENT DATE: 20231101
